FAERS Safety Report 10243912 (Version 1)
Quarter: 2014Q2

REPORT INFORMATION
  Report Type: Spontaneous
  Country: GB (occurrence: None)
  Receive Date: 20140616
  Receipt Date: 20140616
  Transmission Date: 20141212
  Serious: Yes (Life-Threatening, Hospitalization, Disabling)
  Sender: FDA-Public Use
  Company Number: AUR-APL-2014-06330

PATIENT
  Age: 74 Year
  Sex: Female
  Weight: 60.8 kg

DRUGS (8)
  1. CLOPIDOGREL [Suspect]
     Indication: ATRIAL FIBRILLATION
     Route: 048
     Dates: start: 20070201, end: 20130909
  2. AMITRIPTYLINE HYDROCHLORIDE (AMITRIPTYLINE HYDROCHLORIDE) (TABLET) (AMITRIPTYLINE HYDROCHLORIDE) [Concomitant]
  3. APIXABAN (APIXABAN) [Concomitant]
  4. CARBOCISTEINE (CARBOCISTEINE) [Concomitant]
  5. LEVOTHYROXINE SODIUM (LEVOTHYROXINE SODIUM) [Concomitant]
  6. PREGABALIN (PREGABALIN) [Concomitant]
  7. PROPAFENONE HYDROCHLORIDE (PROPAFENONE HYDROCHLORIDE) [Concomitant]
  8. ZOPICLONE (ZOPICLONE) [Concomitant]

REACTIONS (4)
  - Spinal cord haemorrhage [None]
  - Quadriplegia [None]
  - Back pain [None]
  - Neck pain [None]
